FAERS Safety Report 19717807 (Version 4)
Quarter: 2022Q2

REPORT INFORMATION
  Report Type: Report from Study
  Country: JP (occurrence: JP)
  Receive Date: 20210819
  Receipt Date: 20220603
  Transmission Date: 20220721
  Serious: Yes (Hospitalization)
  Sender: FDA-Public Use
  Company Number: NVSJ2021JP009610

PATIENT
  Age: 59 Year
  Sex: Female
  Weight: 79 kg

DRUGS (5)
  1. EVEROLIMUS [Suspect]
     Active Substance: EVEROLIMUS
     Indication: Cervix carcinoma
     Dosage: 10 MG
     Route: 048
     Dates: start: 20210603, end: 20210619
  2. EVEROLIMUS [Suspect]
     Active Substance: EVEROLIMUS
     Dosage: 5 MG
     Route: 048
     Dates: start: 20210715
  3. TRAMADOL [Suspect]
     Active Substance: TRAMADOL
     Indication: Analgesic therapy
     Dosage: 100 MG, TID
     Route: 048
     Dates: end: 20210621
  4. CALONAL [Concomitant]
     Active Substance: ACETAMINOPHEN
     Indication: Analgesic therapy
     Dosage: 500 MG, WHEN IN PAIN
     Route: 048
  5. HERBALS [Concomitant]
     Active Substance: HERBALS
     Indication: Energy increased
     Dosage: 2.5 MG, TID
     Route: 048
     Dates: start: 20210617

REACTIONS (7)
  - Hypophagia [Unknown]
  - Nausea [Recovering/Resolving]
  - Vomiting [Recovering/Resolving]
  - Pyrexia [Recovering/Resolving]
  - Decreased appetite [Unknown]
  - Stomatitis [Recovered/Resolved]
  - Blood creatinine increased [Not Recovered/Not Resolved]

NARRATIVE: CASE EVENT DATE: 20210608
